FAERS Safety Report 16076854 (Version 4)
Quarter: 2021Q1

REPORT INFORMATION
  Report Type: Other
  Country: US (occurrence: US)
  Receive Date: 20190315
  Receipt Date: 20210125
  Transmission Date: 20210419
  Serious: Yes (Hospitalization, Other)
  Sender: FDA-Public Use
  Company Number: US-ROCHE-2280286

PATIENT
  Sex: Female
  Weight: 83.99 kg

DRUGS (21)
  1. BACLOFEN. [Concomitant]
     Active Substance: BACLOFEN
     Indication: MUSCLE SPASMS
     Dosage: ONGOING : YES
     Dates: start: 202007
  2. BIOTIN [Concomitant]
     Active Substance: BIOTIN
     Dosage: ONGOING : YES
  3. POTASSIUM [Concomitant]
     Active Substance: POTASSIUM
     Dosage: STARTED AT 37 YEARS OF AGE ; ONGOING : YES
  4. FOSAMAX [Concomitant]
     Active Substance: ALENDRONATE SODIUM
     Indication: MULTIPLE FRACTURES
     Dosage: ONGOING : YES
  5. SERTRALINE [Concomitant]
     Active Substance: SERTRALINE HYDROCHLORIDE
     Indication: DEPRESSION
     Dosage: ONGOING : YES
     Dates: start: 2015
  6. BABY ASPIRIN [Concomitant]
     Active Substance: ASPIRIN
     Dosage: ONGOING : YES
  7. OCREVUS [Suspect]
     Active Substance: OCRELIZUMAB
     Indication: PRIMARY PROGRESSIVE MULTIPLE SCLEROSIS
     Dosage: NEXT INFUSION: 07/NOV/2018
     Route: 042
     Dates: start: 20180516
  8. TIZANIDINE. [Concomitant]
     Active Substance: TIZANIDINE
     Indication: MUSCLE SPASMS
     Dosage: STARTED IN EARLY 2000S ; ONGOING : YES
  9. REPATHA [Concomitant]
     Active Substance: EVOLOCUMAB
     Indication: LOW DENSITY LIPOPROTEIN INCREASED
     Dosage: ONGOING : YES
     Dates: start: 202004
  10. CARBAMAZEPINE. [Concomitant]
     Active Substance: CARBAMAZEPINE
     Dosage: STARTED BETWEEN 1992 AND 1993 ; ONGOING : YES
  11. RED YEAST RICE [Concomitant]
     Active Substance: DIETARY SUPPLEMENT
     Dosage: ONGOING : YES
  12. OCREVUS [Suspect]
     Active Substance: OCRELIZUMAB
     Indication: RELAPSING MULTIPLE SCLEROSIS
     Route: 042
     Dates: start: 201805
  13. DONEPEZIL. [Concomitant]
     Active Substance: DONEPEZIL
     Dosage: ONE IN THE EVENING ; ONGOING : YES
  14. GABAPENTIN. [Concomitant]
     Active Substance: GABAPENTIN
  15. LEVOTHYROXINE. [Concomitant]
     Active Substance: LEVOTHYROXINE
     Indication: HYPOTHYROIDISM
     Dosage: ONGOING : YES
     Dates: start: 1983
  16. IRON [Concomitant]
     Active Substance: IRON
     Indication: ANAEMIA
     Dosage: STARTED 2?2.5 YEARS AGO ; ONGOING : YES
  17. FUROSEMIDE. [Concomitant]
     Active Substance: FUROSEMIDE
     Indication: FLUID RETENTION
     Dosage: STARTED IN 1990^S ; ONGOING : YES
  18. NITROFURANTIN [Concomitant]
     Active Substance: NITROFURANTOIN
     Indication: URINARY TRACT INFECTION
     Dosage: MONO CAP; AT BEDTIME ; ONGOING : YES
     Dates: start: 2017
  19. VITAMIN C [Concomitant]
     Active Substance: ASCORBIC ACID
     Dosage: STARTED SINCE 35 YEARS OLD ; ONGOING : YES
  20. OCREVUS [Suspect]
     Active Substance: OCRELIZUMAB
     Indication: SECONDARY PROGRESSIVE MULTIPLE SCLEROSIS
     Route: 042
     Dates: start: 2017
  21. COENZYME Q10 [Concomitant]
     Active Substance: DIETARY SUPPLEMENT\UBIDECARENONE
     Dosage: ONGOING : YES

REACTIONS (12)
  - Pneumonia [Unknown]
  - Urinary tract infection [Not Recovered/Not Resolved]
  - Multiple sclerosis relapse [Not Recovered/Not Resolved]
  - Wound [Not Recovered/Not Resolved]
  - Pulmonary oedema [Unknown]
  - Insomnia [Recovered/Resolved]
  - Decubitus ulcer [Recovering/Resolving]
  - Rash [Not Recovered/Not Resolved]
  - Osteomyelitis [Not Recovered/Not Resolved]
  - Diarrhoea [Recovered/Resolved]
  - Intentional product use issue [Unknown]
  - Off label use [Unknown]

NARRATIVE: CASE EVENT DATE: 2017
